FAERS Safety Report 4282585-1 (Version None)
Quarter: 2004Q1

REPORT INFORMATION
  Report Type: 
  Country: None (occurrence: None)
  Receive Date: 20040130
  Receipt Date: 20020301
  Transmission Date: 20041129
  Serious: No
  Sender: FDA-Public Use
  Company Number: US-BRISTOL-MYERS SQUIBB COMPANY-11752318

PATIENT
  Age: 28 Year
  Sex: Female

DRUGS (6)
  1. SERZONE [Suspect]
     Indication: PANIC DISORDER
     Dosage: ^CONSISTANT^ SINCE EARLY 01;100MG DAILY ^ON AND OFF^ SINCE 8-15-96.DR SAID PT BEGAN 27-DEC-00
     Route: 048
     Dates: start: 19960815
  2. CONTRACEPTIVE [Concomitant]
     Dosage: STOPPED DURING HER PREGNANCY
  3. ATENOLOL [Concomitant]
     Dosage: STOPPED DURING HER PREGNANCY
     Dates: start: 20010924
  4. KLONOPIN [Concomitant]
     Indication: ANXIETY
     Dosage: 1 DAILY AS NEEDED
     Dates: start: 19920101
  5. NEURONTIN [Concomitant]
  6. PRENATAL VITAMINS [Concomitant]

REACTIONS (11)
  - BLOOD CHOLESTEROL INCREASED [None]
  - CHEST DISCOMFORT [None]
  - DIZZINESS [None]
  - DRUG EXPOSURE DURING PREGNANCY [None]
  - DYSPNOEA [None]
  - MIDDLE INSOMNIA [None]
  - MIGRAINE [None]
  - NORMAL NEWBORN [None]
  - SLEEP TALKING [None]
  - SLEEP WALKING [None]
  - VISUAL DISTURBANCE [None]
